FAERS Safety Report 15788633 (Version 3)
Quarter: 2019Q2

REPORT INFORMATION
  Report Type: Report from Study
  Country: US (occurrence: US)
  Receive Date: 20190104
  Receipt Date: 20190620
  Transmission Date: 20190711
  Serious: Yes (Other)
  Sender: FDA-Public Use
  Company Number: US-ASTELLAS-2019US000192

PATIENT
  Sex: Male

DRUGS (1)
  1. ENZALUTAMIDE [Suspect]
     Active Substance: ENZALUTAMIDE
     Indication: HORMONE-REFRACTORY PROSTATE CANCER
     Route: 048
     Dates: start: 20181015

REACTIONS (7)
  - Hypersomnia [Unknown]
  - Cognitive disorder [Unknown]
  - Somnolence [Unknown]
  - Nightmare [Unknown]
  - Amnesia [Unknown]
  - Fatigue [Unknown]
  - Blood pressure decreased [Unknown]
